FAERS Safety Report 4503584-8 (Version None)
Quarter: 2004Q4

REPORT INFORMATION
  Report Type: 
  Country: None (occurrence: None)
  Receive Date: 20041117
  Receipt Date: 20041108
  Transmission Date: 20050328
  Serious: Yes (Hospitalization, Other)
  Sender: FDA-Public Use
  Company Number: PHEH2004US12016

PATIENT
  Age: 56 Year
  Sex: Female

DRUGS (5)
  1. ZELNORM [Suspect]
     Indication: CONSTIPATION
     Dosage: 6 MG, BID
     Route: 048
     Dates: start: 20040707, end: 20041017
  2. ACTONEL [Concomitant]
     Indication: OSTEOPENIA
  3. ZOLOFT [Concomitant]
     Indication: DEPRESSION
  4. VITAMINS NOS [Concomitant]
  5. CALCIUM [Concomitant]

REACTIONS (13)
  - ABDOMINAL PAIN [None]
  - ABDOMINAL TENDERNESS [None]
  - ACIDOSIS [None]
  - ANKLE FRACTURE [None]
  - ATRIAL FIBRILLATION [None]
  - BIOPSY SMALL INTESTINE ABNORMAL [None]
  - COMPUTERISED TOMOGRAM ABNORMAL [None]
  - ENTERITIS [None]
  - INTESTINAL ANASTOMOSIS [None]
  - INTESTINAL INFARCTION [None]
  - INTESTINAL ISCHAEMIA [None]
  - LAPAROTOMY [None]
  - WHITE BLOOD CELL COUNT INCREASED [None]
